FAERS Safety Report 11112790 (Version 2)
Quarter: 2015Q3

REPORT INFORMATION
  Report Type: Spontaneous
  Country: JP (occurrence: JP)
  Receive Date: 20150514
  Receipt Date: 20150708
  Transmission Date: 20151125
  Serious: Yes (Death)
  Sender: FDA-Public Use
  Company Number: JP-TEVA-561771ISR

PATIENT
  Age: 65 Year
  Sex: Female
  Weight: 62 kg

DRUGS (11)
  1. MAGNESIUM OXIDE. [Concomitant]
     Active Substance: MAGNESIUM OXIDE
     Dosage: 1500 MILLIGRAM DAILY;
     Route: 048
     Dates: start: 20140520, end: 20140520
  2. CELECOX [Concomitant]
     Active Substance: CELECOXIB
     Indication: CANCER PAIN
     Dosage: 400 MILLIGRAM DAILY;
     Route: 048
     Dates: start: 20140520, end: 20140520
  3. BETAMETHASONE. [Concomitant]
     Active Substance: BETAMETHASONE
     Indication: CANCER PAIN
     Dosage: 2 MILLIGRAM DAILY;
     Route: 048
     Dates: start: 20140520, end: 20140520
  4. E-FEN BUCCAL [Suspect]
     Active Substance: FENTANYL CITRATE
     Dosage: 200 MICROGRAM DAILY;
     Route: 002
     Dates: start: 20140416, end: 20140416
  5. FENTOS [Concomitant]
     Active Substance: FENTANYL
     Indication: CANCER PAIN
     Dosage: 3 MILLIGRAM DAILY;
     Route: 062
     Dates: end: 20140525
  6. FEROTYM [Concomitant]
     Active Substance: FERROUS CITRATE\SODIUM
     Indication: ANAEMIA
     Dosage: 100 MILLIGRAM DAILY;
     Route: 048
     Dates: start: 20140515, end: 20140515
  7. ETHYL LOFLAZEPATE [Concomitant]
     Active Substance: ETHYL LOFLAZEPATE
     Indication: INSOMNIA
     Dosage: 1 MILLIGRAM DAILY;
     Route: 048
     Dates: start: 20140521, end: 20140521
  8. E-FEN BUCCAL [Suspect]
     Active Substance: FENTANYL CITRATE
     Indication: BREAKTHROUGH PAIN
     Dosage: 100 MICROGRAM DAILY;
     Route: 002
     Dates: start: 20140415, end: 20140415
  9. E-FEN BUCCAL [Suspect]
     Active Substance: FENTANYL CITRATE
     Dosage: 100 MCG - 300 MCG
     Route: 002
     Dates: start: 20140416, end: 20140425
  10. E-FEN BUCCAL [Suspect]
     Active Substance: FENTANYL CITRATE
     Dosage: 100 MICROGRAM DAILY;
     Route: 002
     Dates: start: 20140426, end: 20140522
  11. OXINORM [Concomitant]
     Active Substance: OXYCODONE HYDROCHLORIDE
     Indication: BREAKTHROUGH PAIN
     Dosage: 10 MILLIGRAM DAILY;
     Route: 048
     Dates: start: 20140525

REACTIONS (2)
  - Breast cancer [Fatal]
  - Somnolence [Unknown]

NARRATIVE: CASE EVENT DATE: 20140520
